FAERS Safety Report 9693024 (Version 1)
Quarter: 2013Q4

REPORT INFORMATION
  Report Type: Spontaneous
  Country: FR (occurrence: FR)
  Receive Date: 20131118
  Receipt Date: 20131118
  Transmission Date: 20140711
  Serious: Yes (Other)
  Sender: FDA-Public Use
  Company Number: FR-MERCK-1311FRA005101

PATIENT
  Age: 47 Year
  Sex: Female

DRUGS (6)
  1. VIRAFERONPEG [Suspect]
     Dosage: 0.5 ML, QW
     Route: 058
     Dates: start: 20131105, end: 20131105
  2. VIRAFERONPEG [Suspect]
     Dosage: 0.5 ML, QW
     Route: 058
     Dates: start: 20131022, end: 20131022
  3. VIRAFERONPEG [Suspect]
     Dosage: 0.45 ML, QW
     Route: 058
     Dates: start: 201306, end: 201310
  4. REBETOL [Concomitant]
     Dosage: UNK
     Route: 048
     Dates: end: 20131108
  5. PROZAC [Concomitant]
  6. ATARAX (HYDROXYZINE HYDROCHLORIDE) [Concomitant]

REACTIONS (18)
  - Anaphylactic shock [Unknown]
  - Uterine contractions abnormal [Unknown]
  - Hepatitis [Unknown]
  - Feeling abnormal [Unknown]
  - Abdominal distension [Unknown]
  - Drug intolerance [Unknown]
  - Breast swelling [Unknown]
  - Acne [Unknown]
  - Renal pain [Unknown]
  - Respiratory depression [Unknown]
  - Lactation disorder [Unknown]
  - Nasal discomfort [Unknown]
  - Paranoia [Unknown]
  - Medication error [Unknown]
  - Dyspnoea [Unknown]
  - Alopecia [Unknown]
  - Pruritus [Unknown]
  - Nausea [Unknown]
